FAERS Safety Report 8388180-7 (Version None)
Quarter: 2012Q2

REPORT INFORMATION
  Report Type: 
  Country: None (occurrence: None)
  Receive Date: 20120525
  Receipt Date: 20120515
  Transmission Date: 20120825
  Serious: Yes (Death, Other)
  Sender: FDA-Public Use
  Company Number: JP-PFIZER INC-2012125731

PATIENT
  Age: 39 Year
  Sex: Male

DRUGS (8)
  1. LIVACT [Concomitant]
     Route: 048
  2. CELEBREX [Suspect]
     Indication: ARTHRALGIA
     Dosage: 100 MG, 2X/DAY
     Route: 048
     Dates: start: 20120514, end: 20120515
  3. CEFONICIDE [Concomitant]
     Dosage: UNK
     Dates: start: 20120510
  4. BIO THREE [Concomitant]
  5. NIZATIDINE [Concomitant]
     Route: 048
  6. URSO 250 [Concomitant]
     Route: 048
  7. LIPIDIL [Concomitant]
     Route: 048
  8. KAYTWO [Concomitant]

REACTIONS (4)
  - ANURIA [None]
  - RENAL FAILURE [None]
  - HEPATIC FAILURE [None]
  - RENAL IMPAIRMENT [None]
